FAERS Safety Report 16880637 (Version 1)
Quarter: 2019Q4

REPORT INFORMATION
  Report Type: Spontaneous
  Country: CZ (occurrence: CZ)
  Receive Date: 20191003
  Receipt Date: 20191003
  Transmission Date: 20200122
  Serious: Yes (Other)
  Sender: FDA-Public Use
  Company Number: CZ-MYLANLABS-2019M1091362

PATIENT
  Age: 46 Year
  Sex: Male
  Weight: 102 kg

DRUGS (5)
  1. ATORVASTATIN [Suspect]
     Active Substance: ATORVASTATIN
     Indication: DYSLIPIDAEMIA
     Dosage: 10 MG, UNK
     Route: 065
     Dates: start: 2013
  2. ACETYLSALICYLIC ACID [Concomitant]
     Active Substance: ASPIRIN
     Indication: ISCHAEMIC HEART DISEASE PROPHYLAXIS
     Dosage: UNK
     Route: 065
  3. INSULIN [Concomitant]
     Active Substance: INSULIN NOS
     Indication: DIABETES MELLITUS
     Dosage: UNK
     Route: 065
  4. EZETIMIBE/ROSUVASTATIN [Suspect]
     Active Substance: EZETIMIBE\ROSUVASTATIN
     Indication: DYSLIPIDAEMIA
     Dosage: ROSUVASTATIN 40 MG/EZETIMIBE 10 MG MG, UNK
     Route: 065
     Dates: start: 2018
  5. ALIROCUMAB [Suspect]
     Active Substance: ALIROCUMAB
     Indication: DYSLIPIDAEMIA
     Dosage: 150 MG, Q2W
     Route: 058
     Dates: start: 201808

REACTIONS (2)
  - Ischaemic stroke [Unknown]
  - Therapeutic response decreased [Unknown]
